FAERS Safety Report 7865790-4 (Version None)
Quarter: 2011Q4

REPORT INFORMATION
  Report Type: 
  Country: None (occurrence: None)
  Receive Date: 20111028
  Receipt Date: 20110224
  Transmission Date: 20120403
  Serious: No
  Sender: FDA-Public Use
  Company Number: US-GLAXOSMITHKLINE-A0915290A

PATIENT
  Age: 54 Year
  Sex: Male

DRUGS (5)
  1. ADVAIR DISKUS 100/50 [Suspect]
     Indication: ASTHMA
     Dosage: 1PUFF PER DAY
     Route: 055
     Dates: start: 20060101
  2. PAXIL CR [Concomitant]
  3. LIPITOR [Concomitant]
  4. TEGRETOL [Concomitant]
  5. LAMICTAL [Concomitant]

REACTIONS (3)
  - DYSPHONIA [None]
  - APHONIA [None]
  - OROPHARYNGEAL PAIN [None]
